FAERS Safety Report 4610571-8 (Version None)
Quarter: 2005Q1

REPORT INFORMATION
  Report Type: 
  Country: None (occurrence: None)
  Receive Date: 20050316
  Receipt Date: 20050311
  Transmission Date: 20050727
  Serious: Yes (Hospitalization)
  Sender: FDA-Public Use
  Company Number: C05-T-026

PATIENT
  Age: 70 Year
  Sex: Male
  Weight: 99.3377 kg

DRUGS (9)
  1. NITROGLYCERIN [Suspect]
     Indication: ANGINA PECTORIS
     Dosage: 0.4 MG
     Dates: start: 19940101, end: 20050101
  2. LOPRESSOR [Concomitant]
  3. CARDURA [Concomitant]
  4. LIPITOR [Concomitant]
  5. PANCREASE [Concomitant]
  6. FORTAMET [Concomitant]
  7. LORTAB [Concomitant]
  8. HUMALOG [Concomitant]
  9. CHEMOTHERAPY [Concomitant]

REACTIONS (6)
  - ACUTE CORONARY SYNDROME [None]
  - ACUTE MYOCARDIAL INFARCTION [None]
  - ANGINA UNSTABLE [None]
  - CORONARY ARTERY RESTENOSIS [None]
  - DRUG INEFFECTIVE [None]
  - PHARMACEUTICAL PRODUCT COMPLAINT [None]
